FAERS Safety Report 6588177-3 (Version None)
Quarter: 2010Q1

REPORT INFORMATION
  Report Type: 
  Country: None (occurrence: None)
  Receive Date: 20100218
  Receipt Date: 20090116
  Transmission Date: 20100710
  Serious: No
  Sender: FDA-Public Use
  Company Number: US-ASTRAZENECA-2009UW01605

PATIENT
  Age: 56 Year
  Sex: Female

DRUGS (2)
  1. ACCOLATE [Suspect]
     Dosage: UNKNOWN
     Route: 048
     Dates: start: 19950101
  2. TOPROL-XL [Suspect]
     Dosage: UNKNOWN
     Route: 048

REACTIONS (1)
  - COUGH [None]
